FAERS Safety Report 22381375 (Version 1)
Quarter: 2023Q2

REPORT INFORMATION
  Report Type: Spontaneous
  Country: US (occurrence: US)
  Receive Date: 20230530
  Receipt Date: 20230530
  Transmission Date: 20230722
  Serious: No
  Sender: FDA-Public Use
  Company Number: US-APOTEX-2023AP004005

PATIENT
  Sex: Male

DRUGS (3)
  1. CYCLOSPORINE [Suspect]
     Active Substance: CYCLOSPORINE
     Indication: Drug hypersensitivity
     Dosage: UNK
     Route: 065
  2. DAPSONE [Suspect]
     Active Substance: DAPSONE
     Indication: Skin mass
     Dosage: UNK
     Route: 065
  3. IMMUNE GLOBULIN NOS [Suspect]
     Active Substance: IMMUNE GLOBULIN NOS
     Indication: Skin mass
     Dosage: UNK
     Route: 042

REACTIONS (1)
  - Adverse event [Unknown]
